FAERS Safety Report 25597789 (Version 1)
Quarter: 2025Q3

REPORT INFORMATION
  Report Type: Spontaneous
  Country: KR (occurrence: KR)
  Receive Date: 20250723
  Receipt Date: 20250723
  Transmission Date: 20251020
  Serious: Yes (Hospitalization)
  Sender: FERRING
  Company Number: KR-FERRINGPH-2025FE03831

PATIENT

DRUGS (2)
  1. MINIRIN [Suspect]
     Active Substance: DESMOPRESSIN ACETATE
     Indication: Nocturia
     Dosage: 0.5 DOSAGE FORM, 1 TIME DAILY
     Route: 065
     Dates: start: 20210415, end: 20210718
  2. HYDROCHLOROTHIAZIDE [Concomitant]
     Active Substance: HYDROCHLOROTHIAZIDE
     Indication: Hypertension
     Dosage: 0.5 DOSAGE FORM, DAILY
     Dates: start: 20181201, end: 20210718

REACTIONS (3)
  - Syncope [Recovered/Resolved]
  - Hyponatraemia [Recovered/Resolved]
  - Wrong technique in product usage process [Recovered/Resolved]

NARRATIVE: CASE EVENT DATE: 20210415
